FAERS Safety Report 9033613 (Version 5)
Quarter: 2013Q3

REPORT INFORMATION
  Report Type: Spontaneous
  Country: US (occurrence: US)
  Receive Date: 20130128
  Receipt Date: 20130925
  Transmission Date: 20140515
  Serious: Yes (Death, Hospitalization)
  Sender: FDA-Public Use
  Company Number: US-BAYER-2013-010181

PATIENT
  Age: 22 Year
  Sex: Female
  Weight: 110.66 kg

DRUGS (6)
  1. YASMIN [Suspect]
     Indication: CONTRACEPTION
     Dosage: UNK
     Dates: start: 20120116, end: 20120121
  2. BENZOYL PEROXIDE [Concomitant]
     Dosage: 5 %, UNK
  3. DEPO-PROVERA [Concomitant]
     Dosage: 150 MG/ML
  4. VANTIN [Concomitant]
     Indication: MULTIPLE ALLERGIES
  5. CLARITIN-D [Concomitant]
     Indication: MULTIPLE ALLERGIES
  6. YAZ [Suspect]

REACTIONS (4)
  - Cerebrovascular accident [Fatal]
  - Aneurysm [Fatal]
  - Pain [Fatal]
  - Injury [Fatal]
